FAERS Safety Report 5451340-9 (Version None)
Quarter: 2007Q3

REPORT INFORMATION
  Report Type: 
  Country: None (occurrence: None)
  Receive Date: 20070911
  Receipt Date: 20070911
  Transmission Date: 20080115
  Serious: Yes (Hospitalization)
  Sender: FDA-Public Use
  Company Number: None

PATIENT
  Sex: Female
  Weight: 51.7 kg

DRUGS (13)
  1. PREDNISONE [Suspect]
     Dosage: 300 MG
  2. DURAGESIC-100 [Concomitant]
  3. HEPARIN SODIUM FLUSH [Concomitant]
  4. LEXAPRO [Concomitant]
  5. LYRICA [Concomitant]
  6. PRANDIN [Concomitant]
  7. PROTONIX [Concomitant]
  8. SENNA [Concomitant]
  9. ULTRAM [Concomitant]
  10. VALTREX [Concomitant]
  11. VERAPIMIL [Concomitant]
  12. ZOFRAN [Concomitant]
  13. KLOR-CON [Concomitant]

REACTIONS (3)
  - FEBRILE NEUTROPENIA [None]
  - PLATELET COUNT DECREASED [None]
  - WHITE BLOOD CELL COUNT DECREASED [None]
